FAERS Safety Report 7198737-7 (Version None)
Quarter: 2010Q4

REPORT INFORMATION
  Report Type: 
  Country: None (occurrence: None)
  Receive Date: 20101227
  Receipt Date: 20101217
  Transmission Date: 20110411
  Serious: Yes (Hospitalization)
  Sender: FDA-Public Use
  Company Number: US-ABBOTT-10P-163-0692422-00

PATIENT
  Sex: Male
  Weight: 79.45 kg

DRUGS (11)
  1. HUMIRA [Suspect]
     Indication: RHEUMATOID ARTHRITIS
     Dates: start: 20100801, end: 20100901
  2. HUMIRA [Suspect]
     Dates: start: 20101201
  3. PREDNISONE [Concomitant]
     Indication: RHEUMATOID ARTHRITIS
  4. SEROQUEL [Concomitant]
     Indication: INSOMNIA
  5. ASPIRIN [Concomitant]
     Indication: CARDIAC DISORDER
  6. CYCLOBENZAPRINE [Concomitant]
     Indication: OSTEOARTHRITIS
  7. FENOFIBRATE [Concomitant]
     Indication: BLOOD CHOLESTEROL INCREASED
  8. SIMVASTATIN [Concomitant]
     Indication: BLOOD CHOLESTEROL INCREASED
  9. LEFLUNOMIDE [Concomitant]
     Indication: RHEUMATOID ARTHRITIS
  10. METHOTREXATE [Concomitant]
     Indication: RHEUMATOID ARTHRITIS
     Dosage: Q WEEK
  11. FOLIC ACID [Concomitant]
     Indication: VITAMIN SUPPLEMENTATION

REACTIONS (1)
  - EXOSTOSIS [None]
